FAERS Safety Report 16123989 (Version 1)
Quarter: 2019Q1

REPORT INFORMATION
  Report Type: Spontaneous
  Country: CA (occurrence: CA)
  Receive Date: 20190327
  Receipt Date: 20190327
  Transmission Date: 20190418
  Serious: Yes (Hospitalization, Disabling)
  Sender: FDA-Public Use
  Company Number: CA-AMREGENT-20190322

PATIENT
  Age: 89 Year
  Sex: Male

DRUGS (5)
  1. ELIQUIS [Concomitant]
     Active Substance: APIXABAN
     Dosage: 2.5 TWICE DAILY
     Route: 065
  2. VENOFER [Suspect]
     Active Substance: IRON SUCROSE
     Dosage: 100 MG DAILY FOR 5 DAYS
     Route: 042
     Dates: start: 20190213, end: 20190217
  3. SPIRIVA [Concomitant]
     Active Substance: TIOTROPIUM BROMIDE MONOHYDRATE
     Dosage: 18 MCG ONCE A DAY
     Route: 065
     Dates: start: 2019
  4. PANTOPRAZOLE [Concomitant]
     Active Substance: PANTOPRAZOLE
     Dosage: 40 ONCE A DAY
     Route: 065
  5. AMOXICILLIN/CLAVULANATE [Concomitant]
     Active Substance: AMOXICILLIN\CLAVULANATE POTASSIUM
     Dosage: 875 MG TWICE DAILY
     Route: 048
     Dates: start: 201902

REACTIONS (4)
  - Peripheral swelling [Recovered/Resolved with Sequelae]
  - Injection site induration [Recovered/Resolved with Sequelae]
  - Off label use [Recovered/Resolved]
  - Venous thrombosis limb [Recovered/Resolved with Sequelae]

NARRATIVE: CASE EVENT DATE: 20190213
